FAERS Safety Report 22148634 (Version 1)
Quarter: 2023Q1

REPORT INFORMATION
  Report Type: Report from Study
  Country: US (occurrence: US)
  Receive Date: 20230328
  Receipt Date: 20230328
  Transmission Date: 20230417
  Serious: Yes (Death, Hospitalization)
  Sender: FDA-Public Use
  Company Number: US-SOCIETAL CDMO GAINESVILLE, LLC-SOC-2023-000013

PATIENT
  Age: 71 Year
  Sex: Female

DRUGS (3)
  1. VERAPAMIL HYDROCHLORIDE [Suspect]
     Active Substance: VERAPAMIL HYDROCHLORIDE
     Indication: Product used for unknown indication
  2. NADOLOL [Concomitant]
     Active Substance: NADOLOL
     Indication: Product used for unknown indication
  3. RITONAVIR [Concomitant]
     Active Substance: RITONAVIR
     Indication: COVID-19
     Dosage: UNK

REACTIONS (3)
  - Labelled drug-drug interaction medication error [Fatal]
  - Septic shock [Fatal]
  - Cardiogenic shock [Fatal]
